FAERS Safety Report 14598106 (Version 3)
Quarter: 2018Q1

REPORT INFORMATION
  Report Type: Spontaneous
  Country: DE (occurrence: DE)
  Receive Date: 20180305
  Receipt Date: 20180330
  Transmission Date: 20180509
  Serious: Yes (Hospitalization, Other)
  Sender: FDA-Public Use
  Company Number: DE-AMGEN-DEUSP2018029143

PATIENT
  Age: 62 Year
  Sex: Male
  Weight: 70 kg

DRUGS (16)
  1. OXALIPLATIN. [Suspect]
     Active Substance: OXALIPLATIN
     Indication: COLORECTAL CANCER METASTATIC
     Dosage: 153.85 MG, Q2WK
     Route: 042
     Dates: start: 20151228, end: 20160509
  2. IRINOTECAN [Suspect]
     Active Substance: IRINOTECAN
     Indication: COLORECTAL CANCER METASTATIC
     Dosage: 298.65 MG, Q2W
     Route: 042
     Dates: start: 20151228, end: 20161107
  3. 5-FLUOROURACIL [Suspect]
     Active Substance: FLUOROURACIL
     Indication: COLORECTAL CANCER
     Dosage: 1 DF, Q2WK (4344-5792 MG)
     Route: 040
     Dates: start: 20151228, end: 20160511
  4. AVASTIN [Suspect]
     Active Substance: BEVACIZUMAB
     Dosage: 350 MG, Q2WK
     Route: 042
     Dates: start: 20161024
  5. OXALIPLATIN. [Suspect]
     Active Substance: OXALIPLATIN
     Dosage: 123.76 OR 122 MG (1 IN 2 WK)
     Route: 042
     Dates: start: 20160815
  6. ONDANSETRON [Concomitant]
     Active Substance: ONDANSETRON
     Indication: NAUSEA
     Dosage: 8 MG, QD
     Route: 042
     Dates: start: 20151228
  7. IRINOTECAN [Suspect]
     Active Substance: IRINOTECAN
     Dosage: 326 MG, Q2W
     Route: 042
     Dates: start: 20161107
  8. 5-FLUOROURACIL [Suspect]
     Active Substance: FLUOROURACIL
     Dosage: 724 MG, Q2WK (4344-5792 MG)
     Route: 040
     Dates: start: 20160829, end: 20161107
  9. AVASTIN [Suspect]
     Active Substance: BEVACIZUMAB
     Dosage: 355 MG, Q2WK
     Route: 042
     Dates: start: 20060404
  10. BISOPROLOL [Concomitant]
     Active Substance: BISOPROLOL
     Indication: HYPERTENSION
     Dosage: 5 MG, QD
     Route: 048
  11. PEGFILGRASTIM [Suspect]
     Active Substance: PEGFILGRASTIM
     Indication: NEUTROPENIA
     Dosage: 6 MG, Q2WK
     Route: 042
     Dates: start: 20151228
  12. DEXAMETHASON [Concomitant]
     Active Substance: DEXAMETHASONE
     Indication: NAUSEA
     Dosage: 8 MG, UNK (BEFORE CHEMOTHERAPY)
     Route: 042
     Dates: start: 20151228
  13. AVASTIN [Suspect]
     Active Substance: BEVACIZUMAB
     Indication: COLORECTAL CANCER METASTATIC
     Dosage: 350 MG, Q2WK
     Route: 042
     Dates: start: 20151228
  14. FOLINIC ACID [Suspect]
     Active Substance: LEUCOVORIN
     Indication: COLORECTAL CANCER
     Dosage: 1 DF, Q2WK (362-364 MG)
     Route: 042
     Dates: start: 20151228, end: 20161107
  15. OXALIPLATIN. [Suspect]
     Active Substance: OXALIPLATIN
     Dosage: 123.76 OR 122 MG (1 IN 2 WK)
     Route: 042
     Dates: start: 20160509
  16. PANTOPRAZOL [Concomitant]
     Active Substance: PANTOPRAZOLE SODIUM
     Indication: PRODUCT USED FOR UNKNOWN INDICATION
     Dosage: 40 MG, QD
     Route: 048
     Dates: start: 20160619

REACTIONS (3)
  - Perihepatic abscess [Recovered/Resolved]
  - Off label use [Unknown]
  - Liver abscess [Recovered/Resolved]

NARRATIVE: CASE EVENT DATE: 20160622
